FAERS Safety Report 5307634-0 (Version None)
Quarter: 2007Q2

REPORT INFORMATION
  Report Type: 
  Country: None (occurrence: None)
  Receive Date: 20070425
  Receipt Date: 20070320
  Transmission Date: 20071010
  Serious: Yes (Other)
  Sender: FDA-Public Use
  Company Number: US-PFIZER INC-2007022946

PATIENT
  Sex: Female
  Weight: 70.3 kg

DRUGS (2)
  1. BEXTRA [Suspect]
     Indication: ARTHRALGIA
  2. BEXTRA [Suspect]
     Indication: BACK PAIN

REACTIONS (2)
  - ANXIETY [None]
  - SKIN REACTION [None]
